FAERS Safety Report 10953065 (Version 1)
Quarter: 2015Q1

REPORT INFORMATION
  Report Type: Spontaneous
  Country: US (occurrence: US)
  Receive Date: 20150325
  Receipt Date: 20150325
  Transmission Date: 20150721
  Serious: Yes (Death, Other)
  Sender: FDA-Public Use
  Company Number: US-CIPLA LTD.-2015US02255

PATIENT

DRUGS (5)
  1. OXYCODONE [Suspect]
     Active Substance: OXYCODONE
  2. ALPRAZOLAM. [Suspect]
     Active Substance: ALPRAZOLAM
  3. LAMOTRIGINE. [Suspect]
     Active Substance: LAMOTRIGINE
  4. FENTANYL. [Suspect]
     Active Substance: FENTANYL
     Route: 062
  5. METHAMPHETAMINE [Suspect]
     Active Substance: METHAMPHETAMINE

REACTIONS (3)
  - Cardiac arrest [Unknown]
  - Death [Fatal]
  - Respiratory arrest [Unknown]
